FAERS Safety Report 16836287 (Version 2)
Quarter: 2020Q2

REPORT INFORMATION
  Report Type: Spontaneous
  Country: US (occurrence: US)
  Receive Date: 20190921
  Receipt Date: 20200403
  Transmission Date: 20200713
  Serious: No
  Sender: FDA-Public Use
  Company Number: US-009507513-1909USA004184

PATIENT
  Age: 83 Year
  Sex: Female

DRUGS (14)
  1. TUMS [Suspect]
     Active Substance: CALCIUM CARBONATE
     Indication: PRODUCT USED FOR UNKNOWN INDICATION
  2. COZAAR [Concomitant]
     Active Substance: LOSARTAN POTASSIUM
  3. ACETAMINOPHEN. [Concomitant]
     Active Substance: ACETAMINOPHEN
  4. ASMANEX [Suspect]
     Active Substance: MOMETASONE FUROATE
     Indication: ASTHMA
     Dosage: 2 PUFFS/ ONCE DAILY AT NIGHT
     Route: 055
     Dates: start: 2005
  5. FLOVENT [Suspect]
     Active Substance: FLUTICASONE PROPIONATE
     Dosage: UNK
  6. ELOCON [Concomitant]
     Active Substance: MOMETASONE FUROATE
  7. PULMICORT TURBUHALER [Suspect]
     Active Substance: BUDESONIDE
  8. VALSARTAN. [Concomitant]
     Active Substance: VALSARTAN
  9. SINGULAIR [Concomitant]
     Active Substance: MONTELUKAST SODIUM
  10. ASMANEX [Suspect]
     Active Substance: MOMETASONE FUROATE
     Dosage: 2 PUFFS DAILY
     Route: 055
  11. ARNUITY ELLIPTA [Suspect]
     Active Substance: FLUTICASONE FUROATE
     Dosage: UNK
  12. RANITIDINE. [Concomitant]
     Active Substance: RANITIDINE
  13. ASMANEX [Suspect]
     Active Substance: MOMETASONE FUROATE
     Dosage: 2 PUFFS DAILY
     Route: 055
  14. ASMANEX [Suspect]
     Active Substance: MOMETASONE FUROATE
     Dosage: 2 PUFFS/ ONCE DAILY AT NIGHT
     Route: 055
     Dates: start: 20200207

REACTIONS (14)
  - Memory impairment [Unknown]
  - Product quality issue [Unknown]
  - Asthma [Recovering/Resolving]
  - Poor quality device used [Unknown]
  - Product availability issue [Unknown]
  - Circumstance or information capable of leading to medication error [Unknown]
  - Gastric disorder [Unknown]
  - Surgery [Unknown]
  - Product quality issue [Unknown]
  - Fatigue [Recovered/Resolved]
  - Visual impairment [Unknown]
  - Product label issue [Unknown]
  - Incorrect dose administered [Unknown]
  - Anxiety [Not Recovered/Not Resolved]

NARRATIVE: CASE EVENT DATE: 20190909
